FAERS Safety Report 6229978-0 (Version None)
Quarter: 2009Q2

REPORT INFORMATION
  Report Type: 
  Country: None (occurrence: None)
  Receive Date: 20090615
  Receipt Date: 20090529
  Transmission Date: 20091009
  Serious: Yes (Hospitalization, Other)
  Sender: FDA-Public Use
  Company Number: US-AMGEN-US153084

PATIENT
  Sex: Female
  Weight: 74.5 kg

DRUGS (6)
  1. ENBREL [Suspect]
     Indication: RHEUMATOID ARTHRITIS
     Route: 058
     Dates: start: 20050317
  2. METHOTREXATE [Concomitant]
  3. LASIX [Concomitant]
  4. ARAVA [Concomitant]
  5. CLARINEX [Concomitant]
  6. LIPITOR [Concomitant]

REACTIONS (3)
  - APPENDICITIS [None]
  - POST PROCEDURAL COMPLICATION [None]
  - URINARY TRACT INFECTION [None]
